FAERS Safety Report 5318068-7 (Version None)
Quarter: 2007Q2

REPORT INFORMATION
  Report Type: 
  Country: None (occurrence: None)
  Receive Date: 20070504
  Receipt Date: 20070504
  Transmission Date: 20071010
  Serious: Yes (Hospitalization)
  Sender: FDA-Public Use
  Company Number: None

PATIENT
  Age: 58 Year
  Sex: Male
  Weight: 112.5 kg

DRUGS (16)
  1. IBUPROFEN [Suspect]
     Indication: BACK PAIN
  2. IBUPROFEN [Suspect]
     Indication: FOOT FRACTURE
  3. IBUPROFEN [Suspect]
     Indication: MUSCULOSKELETAL PAIN
  4. IBUPROFEN [Suspect]
     Indication: PAIN
  5. KETOROLAC TROMETH 30MG/ML INJ [Suspect]
     Indication: BACK PAIN
     Dosage: 60 MG
     Dates: start: 20061213
  6. KETOROLAC TROMETH 30MG/ML INJ [Suspect]
     Indication: MUSCULOSKELETAL PAIN
     Dosage: 60 MG
     Dates: start: 20061213
  7. KETOROLAC TROMETH 30MG/ML INJ [Suspect]
     Indication: PAIN
     Dosage: 60 MG
     Dates: start: 20061213
  8. KETOROLAC TROMETH 30MG/ML INJ [Suspect]
     Indication: BACK PAIN
     Dosage: 60 MG
     Dates: start: 20070105
  9. KETOROLAC TROMETH 30MG/ML INJ [Suspect]
     Indication: MUSCULOSKELETAL PAIN
     Dosage: 60 MG
     Dates: start: 20070105
  10. KETOROLAC TROMETH 30MG/ML INJ [Suspect]
     Indication: PAIN
     Dosage: 60 MG
     Dates: start: 20070105
  11. KETOROLAC TROMETH 30MG/ML INJ [Suspect]
     Indication: BACK PAIN
     Dosage: 60 MG
     Dates: start: 20070126
  12. KETOROLAC TROMETH 30MG/ML INJ [Suspect]
     Indication: MUSCULOSKELETAL PAIN
     Dosage: 60 MG
     Dates: start: 20070126
  13. KETOROLAC TROMETH 30MG/ML INJ [Suspect]
     Indication: PAIN
     Dosage: 60 MG
     Dates: start: 20070126
  14. CYCLOBENZAPRINE HCL [Concomitant]
     Indication: FOOT FRACTURE
  15. AMITRIPYTLINE HCL [Concomitant]
  16. HYDROCHLOROTHIAZIDE [Concomitant]

REACTIONS (1)
  - GASTROINTESTINAL HAEMORRHAGE [None]
